FAERS Safety Report 13574066 (Version 1)
Quarter: 2017Q2

REPORT INFORMATION
  Report Type: Spontaneous
  Country: ES (occurrence: ES)
  Receive Date: 20170523
  Receipt Date: 20170523
  Transmission Date: 20170830
  Serious: Yes (Other)
  Sender: FDA-Public Use
  Company Number: ES-CELGENEUS-ESP-20170504308

PATIENT

DRUGS (1)
  1. OTEZLA [Suspect]
     Active Substance: APREMILAST
     Indication: PRODUCT USED FOR UNKNOWN INDICATION
     Dosage: 60 MG
     Route: 048

REACTIONS (20)
  - Nausea [Unknown]
  - Tachycardia [Unknown]
  - Asthenia [Unknown]
  - Lymphadenopathy [Unknown]
  - Sinusitis [Unknown]
  - Headache [Unknown]
  - Anxiety [Unknown]
  - Cytomegalovirus hepatitis [Unknown]
  - Vomiting [Unknown]
  - Depression [Unknown]
  - Dermatitis exfoliative [Unknown]
  - Malaise [Unknown]
  - Depersonalisation/derealisation disorder [Unknown]
  - Respiratory tract infection [Unknown]
  - Nervousness [Unknown]
  - Weight decreased [Unknown]
  - Dizziness [Unknown]
  - Memory impairment [Unknown]
  - Mood altered [Unknown]
  - Diarrhoea [Unknown]
